FAERS Safety Report 7259205-7 (Version None)
Quarter: 2011Q1

REPORT INFORMATION
  Report Type: 
  Country: None (occurrence: None)
  Receive Date: 20110129
  Receipt Date: 20100812
  Transmission Date: 20110831
  Serious: No
  Sender: FDA-Public Use
  Company Number: US-ABBOTT-10P-163-0664019-00

PATIENT
  Sex: Male
  Weight: 119.4 kg

DRUGS (2)
  1. HUMIRA [Suspect]
     Indication: PSORIATIC ARTHROPATHY
     Dates: start: 20100601
  2. PREDNISONE [Concomitant]
     Indication: PSORIATIC ARTHROPATHY

REACTIONS (5)
  - COUGH [None]
  - BODY TINEA [None]
  - DYSPNOEA [None]
  - PARAESTHESIA [None]
  - ABDOMINAL DISCOMFORT [None]
